FAERS Safety Report 20647704 (Version 1)
Quarter: 2022Q1

REPORT INFORMATION
  Report Type: Spontaneous
  Country: US (occurrence: None)
  Receive Date: 20220328
  Receipt Date: 20220328
  Transmission Date: 20220424
  Serious: Yes (Other)
  Sender: FDA-Public Use
  Company Number: None

PATIENT
  Age: 31 Year
  Sex: Male
  Weight: 70.76 kg

DRUGS (1)
  1. INSULIN GLARGINE [Suspect]
     Active Substance: INSULIN GLARGINE
     Indication: Type 1 diabetes mellitus
     Dosage: FREQUENCY : DAILY;?
     Route: 058
     Dates: start: 2022, end: 2022

REACTIONS (2)
  - Rash [None]
  - Fluid retention [None]

NARRATIVE: CASE EVENT DATE: 20220326
